FAERS Safety Report 25499961 (Version 1)
Quarter: 2025Q3

REPORT INFORMATION
  Report Type: Spontaneous
  Country: EU (occurrence: EU)
  Receive Date: 20250701
  Receipt Date: 20250701
  Transmission Date: 20251020
  Serious: Yes (Hospitalization, Other)
  Sender: SANDOZ
  Company Number: EU-SANDOZ-SDZ2025DE044661

PATIENT
  Age: 87 Year
  Sex: Female

DRUGS (2)
  1. RIVASTIGMINE TARTRATE [Suspect]
     Active Substance: RIVASTIGMINE TARTRATE
     Indication: Amyloidosis
     Route: 065
     Dates: start: 202506
  2. RIVASTIGMINE TARTRATE [Suspect]
     Active Substance: RIVASTIGMINE TARTRATE
     Indication: Angiopathy

REACTIONS (7)
  - Syncope [Recovered/Resolved]
  - Cardiovascular disorder [Recovered/Resolved]
  - Speech disorder [Recovered/Resolved]
  - Gait inability [Recovered/Resolved]
  - Confusional state [Recovered/Resolved]
  - Nausea [Recovered/Resolved]
  - Product use in unapproved indication [Unknown]

NARRATIVE: CASE EVENT DATE: 20250617
